FAERS Safety Report 7533670-X (Version None)
Quarter: 2011Q2

REPORT INFORMATION
  Report Type: 
  Country: None (occurrence: None)
  Receive Date: 20110608
  Receipt Date: 20060331
  Transmission Date: 20111010
  Serious: Yes (Death, Other)
  Sender: FDA-Public Use
  Company Number: PHHO2006PH02313

PATIENT
  Sex: Male

DRUGS (1)
  1. DIOVAN HCT [Suspect]
     Indication: HYPERTENSION
     Dosage: 172.5 MG, UNK
     Route: 048
     Dates: start: 20050430

REACTIONS (3)
  - ISCHAEMIC CARDIOMYOPATHY [None]
  - CARDIAC ARREST [None]
  - RENAL FAILURE CHRONIC [None]
